FAERS Safety Report 16478828 (Version 2)
Quarter: 2019Q3

REPORT INFORMATION
  Report Type: Spontaneous
  Country: US (occurrence: US)
  Receive Date: 20190626
  Receipt Date: 20190927
  Transmission Date: 20191004
  Serious: No
  Sender: FDA-Public Use
  Company Number: US-PFIZER INC-2019274426

PATIENT
  Age: 77 Year
  Sex: Female
  Weight: 75.28 kg

DRUGS (2)
  1. LETROZOLE. [Suspect]
     Active Substance: LETROZOLE
     Dosage: 2.5 MG, UNK
     Dates: start: 20190605
  2. IBRANCE [Suspect]
     Active Substance: PALBOCICLIB
     Indication: BREAST CANCER METASTATIC
     Dosage: 125 MG, CYCLIC (1/DAY FOR 21 DAYS)
     Dates: start: 20190605

REACTIONS (1)
  - Fatigue [Recovering/Resolving]

NARRATIVE: CASE EVENT DATE: 201906
